FAERS Safety Report 4499810-4 (Version None)
Quarter: 2004Q4

REPORT INFORMATION
  Report Type: 
  Country: None (occurrence: None)
  Receive Date: 20041112
  Receipt Date: 20041112
  Transmission Date: 20050328
  Serious: No
  Sender: FDA-Public Use
  Company Number: None

PATIENT
  Sex: Male
  Weight: 97.5234 kg

DRUGS (1)
  1. CRESTOR [Suspect]

REACTIONS (5)
  - FEELING ABNORMAL [None]
  - MYALGIA [None]
  - PAIN [None]
  - POLLAKIURIA [None]
  - SLEEP DISORDER [None]
